FAERS Safety Report 4638125-8 (Version None)
Quarter: 2005Q2

REPORT INFORMATION
  Report Type: 
  Country: None (occurrence: None)
  Receive Date: 20050415
  Receipt Date: 20050405
  Transmission Date: 20051028
  Serious: Yes (Other)
  Sender: FDA-Public Use
  Company Number: 2005026792

PATIENT
  Age: 52 Year
  Sex: Female
  Weight: 104.3273 kg

DRUGS (7)
  1. NEURONTIN [Suspect]
     Indication: BACK PAIN
     Dosage: 600 MG (300 MG, 2 IN 1 D), ORAL
     Route: 048
     Dates: start: 20030506
  2. NEURONTIN [Suspect]
     Indication: LUMBAR RADICULOPATHY
     Dosage: 600 MG (300 MG, 2 IN 1 D), ORAL
     Route: 048
     Dates: start: 20030506
  3. NEURONTIN [Suspect]
     Indication: RESTLESS LEGS SYNDROME
     Dosage: 600 MG (300 MG, 2 IN 1 D), ORAL
     Route: 048
     Dates: start: 20030506
  4. LANSOPRAZOLE [Concomitant]
  5. CELECOXIB (CELECOXIB) [Concomitant]
  6. CLONAZEPAM [Concomitant]
  7. EZETIMIBE (EZETIMIBE) [Concomitant]

REACTIONS (3)
  - DRUG INEFFECTIVE [None]
  - EXOSTOSIS [None]
  - RESTLESS LEGS SYNDROME [None]
